FAERS Safety Report 8489409-7 (Version None)
Quarter: 2012Q3

REPORT INFORMATION
  Report Type: 
  Country: None (occurrence: None)
  Receive Date: 20120705
  Receipt Date: 20120627
  Transmission Date: 20120928
  Serious: Yes (Hospitalization)
  Sender: FDA-Public Use
  Company Number: JP-B.I. PHARMACEUTICALS,INC./RIDGEFIELD-2012-BP-13001NB

PATIENT
  Age: 85 Year
  Sex: Female

DRUGS (6)
  1. DIGOXIN [Concomitant]
     Dosage: 0.125 MG
     Route: 048
  2. PRADAXA [Suspect]
     Indication: ATRIAL FIBRILLATION
     Dosage: 220 MG
     Route: 048
  3. TORSEMIDE [Concomitant]
     Dosage: 2 MG
     Route: 048
  4. MAGNESIUM OXIDE [Concomitant]
     Dosage: 990 MG
     Route: 048
  5. CANDESARTAN CILEXETIL [Concomitant]
     Dosage: 2 MG
     Route: 048
  6. ALOSENN [Concomitant]
     Dosage: 1.5 MG
     Route: 048

REACTIONS (3)
  - PNEUMONIA BACTERIAL [None]
  - ASTHENIA [None]
  - DYSPHAGIA [None]
